FAERS Safety Report 10096583 (Version 1)
Quarter: 2014Q2

REPORT INFORMATION
  Report Type: Report from Study
  Country: US (occurrence: US)
  Receive Date: 20140422
  Receipt Date: 20140422
  Transmission Date: 20141212
  Serious: Yes (Hospitalization)
  Sender: FDA-Public Use
  Company Number: US-ABBVIE-14P-163-1225279-00

PATIENT
  Sex: Male
  Weight: 76.27 kg

DRUGS (6)
  1. HUMIRA [Suspect]
     Indication: CROHN^S DISEASE
     Route: 058
     Dates: end: 201212
  2. PREDNISONE [Concomitant]
     Indication: CROHN^S DISEASE
  3. B-12 [Concomitant]
     Indication: VITAMIN SUPPLEMENTATION
  4. METOPROLOL [Concomitant]
     Indication: HYPERTENSION
  5. TRAMADOL [Concomitant]
     Indication: BACK PAIN
  6. VITAMIN D [Concomitant]
     Indication: VITAMIN SUPPLEMENTATION

REACTIONS (3)
  - Renal failure acute [Recovered/Resolved]
  - Anal fistula [Recovered/Resolved]
  - Dehydration [Recovered/Resolved]
